FAERS Safety Report 21513444 (Version 1)
Quarter: 2022Q4

REPORT INFORMATION
  Report Type: Spontaneous
  Country: US (occurrence: None)
  Receive Date: 20221026
  Receipt Date: 20221026
  Transmission Date: 20230112
  Serious: Yes (Death)
  Sender: FDA-Public Use
  Company Number: None

PATIENT
  Sex: Female
  Weight: 63.5 kg

DRUGS (16)
  1. LAPATINIB DITOSYLATE [Suspect]
     Active Substance: LAPATINIB DITOSYLATE
     Indication: Breast cancer female
     Dosage: OTHER FREQUENCY : 500MG M,W,FRI;?
     Route: 048
  2. ANASTROZOLE [Concomitant]
  3. ASPIRIN [Concomitant]
     Active Substance: ASPIRIN
  4. CARVEDILOL [Concomitant]
     Active Substance: CARVEDILOL
  5. DOCUSATE [Concomitant]
  6. ESOMEPRAZOLE [Concomitant]
  7. FLUOCINONIDE [Concomitant]
  8. HYDROCHLORTHIAZIDE [Concomitant]
  9. LOSARTAN [Concomitant]
  10. LOTRISONE [Concomitant]
  11. MECLIZINE [Concomitant]
  12. POTASSIUM ACETATE [Concomitant]
  13. TEMPAZEPAM [Concomitant]
  14. TRAMADOL [Concomitant]
  15. VITAMIN C [Concomitant]
  16. VITAMIN D3 [Concomitant]

REACTIONS (1)
  - Death [None]
